FAERS Safety Report 26207820 (Version 1)
Quarter: 2025Q4

REPORT INFORMATION
  Report Type: Spontaneous
  Country: US (occurrence: None)
  Receive Date: 20251225
  Receipt Date: 20251225
  Transmission Date: 20260117
  Serious: No
  Sender: FDA-CTU
  Company Number: None

PATIENT
  Age: 56 Year
  Sex: Female
  Weight: 57.15 kg

DRUGS (8)
  1. COSMETICS [Suspect]
     Active Substance: COSMETICS
  2. Glp1 [Concomitant]
  3. ZETIA [Concomitant]
     Active Substance: EZETIMIBE
  4. PROGESTERONE [Concomitant]
     Active Substance: PROGESTERONE
  5. stradiol [Concomitant]
  6. LUNESTA [Concomitant]
     Active Substance: ESZOPICLONE
  7. SONATA [Concomitant]
     Active Substance: ZALEPLON
  8. VITAMINS [Concomitant]
     Active Substance: VITAMINS

REACTIONS (4)
  - Eyelids pruritus [None]
  - Eyelid pain [None]
  - Eyelid irritation [None]
  - Erythema of eyelid [None]

NARRATIVE: CASE EVENT DATE: 20251224
